FAERS Safety Report 4786091-7 (Version None)
Quarter: 2005Q3

REPORT INFORMATION
  Report Type: 
  Country: None (occurrence: None)
  Receive Date: 20050930
  Receipt Date: 20050913
  Transmission Date: 20060218
  Serious: Yes (Hospitalization)
  Sender: FDA-Public Use
  Company Number: DE_050916939

PATIENT
  Sex: Female

DRUGS (1)
  1. YENTREVE (DULOXETINE HYDROCHLORIDE) [Suspect]
     Dosage: 40 MG DAY
     Dates: start: 20041201, end: 20040101

REACTIONS (9)
  - ANAESTHETIC COMPLICATION [None]
  - APPENDICITIS PERFORATED [None]
  - BLOOD PRESSURE INCREASED [None]
  - DRUG WITHDRAWAL SYNDROME [None]
  - HEART RATE DECREASED [None]
  - RENAL COLIC [None]
  - RESTLESSNESS [None]
  - THINKING ABNORMAL [None]
  - TINNITUS [None]
